FAERS Safety Report 23979331 (Version 1)
Quarter: 2024Q2

REPORT INFORMATION
  Report Type: Report from Study
  Country: CA (occurrence: CA)
  Receive Date: 20240615
  Receipt Date: 20240615
  Transmission Date: 20240716
  Serious: Yes (Other)
  Sender: FDA-Public Use
  Company Number: CA-AMGEN-CANSL2024113780

PATIENT
  Age: 80 Year
  Sex: Female

DRUGS (1)
  1. REPATHA [Suspect]
     Active Substance: EVOLOCUMAB
     Indication: Arteriosclerosis
     Dosage: UNK UNK, Q2WK (ONE INJECTION)
     Route: 065
     Dates: start: 20220722, end: 20240519

REACTIONS (6)
  - Epilepsy [Recovered/Resolved]
  - Loss of consciousness [Unknown]
  - Muscle spasms [Recovered/Resolved]
  - Pain in extremity [Recovered/Resolved]
  - Chromaturia [Recovered/Resolved]
  - Dysuria [Recovered/Resolved]
